FAERS Safety Report 11433480 (Version 3)
Quarter: 2015Q4

REPORT INFORMATION
  Report Type: Spontaneous
  Country: US (occurrence: US)
  Receive Date: 20150831
  Receipt Date: 20151028
  Transmission Date: 20160304
  Serious: No
  Sender: FDA-Public Use
  Company Number: US-BRISTOL-MYERS SQUIBB COMPANY-BMS-2015-056754

PATIENT
  Sex: Male
  Weight: 78 kg

DRUGS (1)
  1. ELIQUIS [Suspect]
     Active Substance: APIXABAN
     Indication: HEART RATE INCREASED
     Dosage: 5 MG, BID
     Route: 065

REACTIONS (2)
  - Reaction to drug excipients [Unknown]
  - Dyspnoea [Unknown]
